FAERS Safety Report 7621512-3 (Version None)
Quarter: 2011Q3

REPORT INFORMATION
  Report Type: 
  Country: None (occurrence: None)
  Receive Date: 20110719
  Receipt Date: 20110715
  Transmission Date: 20111222
  Serious: Yes (Other)
  Sender: FDA-Public Use
  Company Number: AU-PFIZER INC-2011142988

PATIENT
  Age: 28 Year
  Sex: Male

DRUGS (7)
  1. CIRCADIN [Concomitant]
     Indication: INSOMNIA
     Dosage: 2 MG, AS NEEDED AT NIGHT
     Route: 048
     Dates: start: 20110616
  2. BACLOFEN [Concomitant]
     Indication: QUADRIPLEGIA
     Dosage: 25 MG, 1X/DAY AT NIGHT
     Route: 048
  3. LYRICA [Suspect]
     Indication: NEURALGIA
     Dosage: 75 MG, UNK
     Route: 048
     Dates: start: 20110616, end: 20110628
  4. XANAX [Concomitant]
     Indication: INSOMNIA
     Dosage: 0.5-1 MG, AS NEEDED
     Route: 048
  5. LYRICA [Suspect]
     Dosage: 100 MG, 2X/DAY
     Dates: start: 20110629
  6. DITROPAN [Concomitant]
     Indication: HYPERTONIC BLADDER
     Dosage: 5 MG, 1X/DAY AT NIGHT
     Route: 048
  7. VALIUM [Concomitant]
     Dosage: UNK

REACTIONS (6)
  - PSYCHOTIC BEHAVIOUR [None]
  - DRUG DEPENDENCE [None]
  - HEADACHE [None]
  - ALOPECIA [None]
  - PRURITUS [None]
  - PERSONALITY CHANGE [None]
